FAERS Safety Report 5800299-0 (Version None)
Quarter: 2008Q3

REPORT INFORMATION
  Report Type: 
  Country: None (occurrence: None)
  Receive Date: 20080703
  Receipt Date: 20080627
  Transmission Date: 20090109
  Serious: Yes (Other)
  Sender: FDA-Public Use
  Company Number: US-AMGEN-STX237283

PATIENT
  Sex: Female

DRUGS (3)
  1. ENBREL [Suspect]
     Indication: ANKYLOSING SPONDYLITIS
     Route: 058
     Dates: start: 20070205
  2. ENBREL [Suspect]
     Indication: SPONDYLOARTHROPATHY
  3. NAPROXEN [Concomitant]
     Route: 065

REACTIONS (2)
  - BENIGN BREAST NEOPLASM [None]
  - UPPER RESPIRATORY TRACT INFECTION [None]
